FAERS Safety Report 8507668-9 (Version None)
Quarter: 2012Q3

REPORT INFORMATION
  Report Type: 
  Country: None (occurrence: None)
  Receive Date: 20120713
  Receipt Date: 20120709
  Transmission Date: 20120928
  Serious: Yes (Hospitalization)
  Sender: FDA-Public Use
  Company Number: NL-BRISTOL-MYERS SQUIBB COMPANY-16754186

PATIENT
  Age: 66 Year
  Sex: Female

DRUGS (14)
  1. CALCICHEW D3 [Concomitant]
  2. TEMAZEPAM [Concomitant]
  3. LEVONORGESTREL AND ETHINYL ESTRADIOL [Concomitant]
  4. FLUTICASONE PROPIONATE [Concomitant]
  5. DICLOFENAC SODIUM [Concomitant]
  6. NITROLINGUAL [Concomitant]
  7. LIQUIFILM FORTE [Concomitant]
  8. PAROXETINE [Concomitant]
  9. SEREVENT [Concomitant]
  10. OMEPRAZOLE MAGNESIUM [Concomitant]
  11. ZONOCT [Concomitant]
  12. IPILIMUMAB [Suspect]
     Indication: MALIGNANT MELANOMA
     Dosage: INTER-11JUN12
     Route: 042
     Dates: start: 20120521
  13. PRIMPERAN TAB [Concomitant]
  14. ACETYLSALICYLZUUR CARDIO [Concomitant]

REACTIONS (4)
  - BLOOD BILIRUBIN INCREASED [None]
  - ABDOMINAL PAIN UPPER [None]
  - ASPARTATE AMINOTRANSFERASE INCREASED [None]
  - DYSPNOEA [None]
